FAERS Safety Report 5041892-5 (Version None)
Quarter: 2006Q2

REPORT INFORMATION
  Report Type: 
  Country: None (occurrence: None)
  Receive Date: 20060627
  Receipt Date: 20060612
  Transmission Date: 20061013
  Serious: Yes (Other)
  Sender: FDA-Public Use
  Company Number: 2006075121

PATIENT
  Age: 54 Year
  Sex: Male
  Weight: 89.8122 kg

DRUGS (4)
  1. LIPITOR [Suspect]
     Indication: BLOOD CHOLESTEROL INCREASED
     Dosage: 20 MG (20 MG, 1 IN 1 D) 3 WEEKS AGO
  2. METFORMIN [Concomitant]
  3. VITAMINS (VITAMINS) [Concomitant]
  4. PREVACID [Concomitant]

REACTIONS (7)
  - ASTHENIA [None]
  - BLOOD CREATINE PHOSPHOKINASE INCREASED [None]
  - DYSPNOEA [None]
  - DYSSTASIA [None]
  - MALAISE [None]
  - MYOPATHY [None]
  - WEIGHT DECREASED [None]
